FAERS Safety Report 9055666 (Version 2)
Quarter: 2013Q1

REPORT INFORMATION
  Report Type: Spontaneous
  Country: DE (occurrence: DE)
  Receive Date: 20130206
  Receipt Date: 20130226
  Transmission Date: 20140127
  Serious: Yes (Hospitalization, Other)
  Sender: FDA-Public Use
  Company Number: DE-ROCHE-1187806

PATIENT
  Sex: Male
  Weight: 83 kg

DRUGS (5)
  1. ROACTEMRA [Suspect]
     Indication: PSORIATIC ARTHROPATHY
     Route: 042
     Dates: start: 20090609, end: 20090609
  2. ROACTEMRA [Suspect]
     Indication: RHEUMATOID ARTHRITIS
  3. DELIX [Concomitant]
     Route: 065
  4. TORASEMID [Concomitant]
     Route: 065
  5. NORVASC [Concomitant]
     Route: 065

REACTIONS (1)
  - Acute myocardial infarction [Unknown]
